FAERS Safety Report 9816806 (Version 1)
Quarter: 2014Q1

REPORT INFORMATION
  Report Type: Spontaneous
  Country: GB (occurrence: GB)
  Receive Date: 20140114
  Receipt Date: 20140114
  Transmission Date: 20141002
  Serious: Yes (Other)
  Sender: FDA-Public Use
  Company Number: GB-B.I. PHARMACEUTICALS,INC./RIDGEFIELD-2014-BI-01489UK

PATIENT
  Age: 77 Year
  Sex: Female
  Weight: 65.2 kg

DRUGS (1)
  1. TRAJENTA [Suspect]
     Route: 048
     Dates: start: 20130802, end: 20131101

REACTIONS (3)
  - Pancreatitis [Recovered/Resolved]
  - Lipase increased [Unknown]
  - Vomiting [Unknown]
